FAERS Safety Report 13963896 (Version 1)
Quarter: 2017Q3

REPORT INFORMATION
  Report Type: Spontaneous
  Country: US (occurrence: US)
  Receive Date: 20170913
  Receipt Date: 20170913
  Transmission Date: 20171128
  Serious: No
  Sender: FDA-Public Use
  Company Number: US-ELI_LILLY_AND_COMPANY-US201709003082

PATIENT
  Sex: Female

DRUGS (1)
  1. TALTZ [Suspect]
     Active Substance: IXEKIZUMAB
     Indication: PSORIASIS
     Dosage: 80 MG, UNKNOWN
     Route: 065

REACTIONS (6)
  - Onycholysis [Unknown]
  - Papule [Unknown]
  - Rash [Unknown]
  - Malaise [Unknown]
  - Arthralgia [Unknown]
  - Urticaria [Unknown]
